FAERS Safety Report 5336553-9 (Version None)
Quarter: 2007Q2

REPORT INFORMATION
  Report Type: 
  Country: None (occurrence: None)
  Receive Date: 20070524
  Receipt Date: 20070510
  Transmission Date: 20071010
  Serious: Yes (Other)
  Sender: FDA-Public Use
  Company Number: FDB-2007-008

PATIENT
  Age: 12 Year
  Sex: Male

DRUGS (2)
  1. IOBENGUANE SULFATE I 131 [Suspect]
     Indication: OFF LABEL USE
  2. IOBENGUANE SULFATE I 131 [Suspect]
     Indication: RADIOTHERAPY

REACTIONS (2)
  - BONE SARCOMA [None]
  - PAPILLARY THYROID CANCER [None]
